FAERS Safety Report 7680077-0 (Version None)
Quarter: 2011Q3

REPORT INFORMATION
  Report Type: 
  Country: None (occurrence: None)
  Receive Date: 20110811
  Receipt Date: 20110811
  Transmission Date: 20111222
  Serious: Yes (Other)
  Sender: FDA-Public Use
  Company Number: None

PATIENT
  Age: 76 Year
  Sex: Female
  Weight: 63.5036 kg

DRUGS (1)
  1. ERYTHROMYCIN [Suspect]
     Dosage: # 60 330 MG EC TAB 1 TABLET TWICE A DAY
     Dates: start: 20110523, end: 20110620

REACTIONS (5)
  - ERYTHEMA [None]
  - SENSATION OF HEAVINESS [None]
  - PRURITUS [None]
  - SKIN INFECTION [None]
  - SKIN HYPERTROPHY [None]
